FAERS Safety Report 5572123-5 (Version None)
Quarter: 2007Q4

REPORT INFORMATION
  Report Type: 
  Country: None (occurrence: None)
  Receive Date: 20071221
  Receipt Date: 20071214
  Transmission Date: 20080405
  Serious: Yes (Other)
  Sender: FDA-Public Use
  Company Number: JP-PFIZER INC-2007105921

PATIENT
  Age: 16 Month
  Sex: Male

DRUGS (4)
  1. ZITHROMAX [Suspect]
     Dosage: DAILY DOSE:100MG
     Route: 048
  2. ASVERIN [Concomitant]
     Route: 048
  3. MUCODYNE [Concomitant]
     Route: 048
  4. PERIACTIN [Concomitant]
     Route: 048

REACTIONS (1)
  - HAEMOPTYSIS [None]
